FAERS Safety Report 9788772 (Version 1)
Quarter: 2013Q4

REPORT INFORMATION
  Report Type: Spontaneous
  Country: US (occurrence: US)
  Receive Date: 20131230
  Receipt Date: 20131230
  Transmission Date: 20140711
  Serious: Yes (Other)
  Sender: FDA-Public Use
  Company Number: US-BRISTOL-MYERS SQUIBB COMPANY-19930403

PATIENT
  Age: 56 Year
  Sex: Male
  Weight: 87.07 kg

DRUGS (4)
  1. BYETTA [Suspect]
     Indication: TYPE 2 DIABETES MELLITUS
     Dates: end: 201312
  2. METFORMIN HCL [Suspect]
     Route: 048
  3. GLYBURIDE [Suspect]
     Dosage: INITIALLY 7.5MG PO
     Route: 048
  4. DIOVAN [Concomitant]
     Route: 048

REACTIONS (4)
  - Gastroenteritis viral [Recovered/Resolved]
  - Fall [Unknown]
  - Blood glucose decreased [Recovered/Resolved]
  - Decreased appetite [Not Recovered/Not Resolved]
